FAERS Safety Report 7641221-4 (Version None)
Quarter: 2011Q3

REPORT INFORMATION
  Report Type: 
  Country: None (occurrence: None)
  Receive Date: 20110728
  Receipt Date: 20110722
  Transmission Date: 20111222
  Serious: Yes (Death, Hospitalization, Other)
  Sender: FDA-Public Use
  Company Number: PHHY2011BR66729

PATIENT
  Sex: Male

DRUGS (4)
  1. CALTREN [Concomitant]
     Indication: HYPERTENSION
     Dosage: 10 MG, 1 TABLET A DAY
  2. DIOVAN [Suspect]
     Indication: HYPERTENSION
     Dosage: 320 MG, 1 TABLET A DAY
     Route: 048
  3. CILOSTAZOL [Concomitant]
     Indication: POOR PERIPHERAL CIRCULATION
     Dosage: 100 MG, 1 TABLET A DAY
  4. ASPIRIN [Concomitant]
     Indication: ANTICOAGULANT THERAPY
     Dosage: 1 DF, 1 TABLET A DAY

REACTIONS (11)
  - PROSTATE CANCER [None]
  - CARDIAC ARREST [None]
  - WHEEZING [None]
  - CARDIAC FAILURE CONGESTIVE [None]
  - SECRETION DISCHARGE [None]
  - HYPERKALAEMIA [None]
  - HYPERTENSION [None]
  - FATIGUE [None]
  - RENAL FAILURE ACUTE [None]
  - ASTHENIA [None]
  - PLEURAL EFFUSION [None]
